FAERS Safety Report 8446334-5 (Version None)
Quarter: 2012Q2

REPORT INFORMATION
  Report Type: 
  Country: None (occurrence: None)
  Receive Date: 20120618
  Receipt Date: 20120611
  Transmission Date: 20120825
  Serious: No
  Sender: FDA-Public Use
  Company Number: US-PFIZER INC-2012108089

PATIENT
  Sex: Female

DRUGS (3)
  1. BIOFREEZE [Suspect]
  2. CELEBREX [Suspect]
     Indication: ARTHRITIS
     Dosage: UNK
     Dates: end: 20120301
  3. CELEBREX [Suspect]
     Dosage: UNK
     Dates: start: 20120401

REACTIONS (5)
  - LIGAMENT SPRAIN [None]
  - RASH [None]
  - ERYTHEMA [None]
  - PRURITUS [None]
  - PAIN [None]
